FAERS Safety Report 20382080 (Version 1)
Quarter: 2022Q1

REPORT INFORMATION
  Report Type: Report from Study
  Country: EG (occurrence: EG)
  Receive Date: 20220127
  Receipt Date: 20220127
  Transmission Date: 20220423
  Serious: Yes (Other)
  Sender: FDA-Public Use
  Company Number: EG-NOVARTISPH-NVSC2022EG014566

PATIENT
  Sex: Female

DRUGS (15)
  1. GILENYA [Suspect]
     Active Substance: FINGOLIMOD HYDROCHLORIDE
     Indication: Multiple sclerosis
     Dosage: 0.5 MG, QD
     Route: 048
     Dates: start: 2016, end: 201911
  2. GILENYA [Suspect]
     Active Substance: FINGOLIMOD HYDROCHLORIDE
     Dosage: 0.5 MG, QD
     Route: 048
     Dates: start: 2019
  3. CAL MAG [Concomitant]
     Indication: Supplementation therapy
     Dosage: 1 DOSAGE FORM, QD
     Route: 048
     Dates: start: 2016
  4. OSSOFORTIN [Concomitant]
     Indication: Supplementation therapy
     Dosage: UNK
     Route: 048
     Dates: start: 2019
  5. VITAMINS [Concomitant]
     Active Substance: VITAMINS
     Indication: Supplementation therapy
     Dosage: UNK
     Route: 048
     Dates: start: 2019
  6. BIOTIN [Concomitant]
     Active Substance: BIOTIN
     Indication: Supplementation therapy
     Dosage: 1 DOSAGE FORM, QD
     Route: 048
     Dates: start: 2019
  7. TRYPTIZOL [Concomitant]
     Active Substance: AMITRIPTYLINE HYDROCHLORIDE
     Indication: Sedative therapy
     Dosage: UNK(STOPPED 3~4 MONTHS AGO)
     Route: 065
     Dates: start: 2020
  8. LUSTRAL [Concomitant]
     Active Substance: SERTRALINE HYDROCHLORIDE
     Indication: Sedative therapy
     Dosage: UNK
     Route: 065
     Dates: start: 2016, end: 2017
  9. CIPRALEX [Concomitant]
     Active Substance: ESCITALOPRAM OXALATE
     Indication: Sedative therapy
     Dosage: UNK(STOPPED AFTER ONE DAY)
     Route: 048
     Dates: start: 2019
  10. SOLU-MEDROL [Concomitant]
     Active Substance: METHYLPREDNISOLONE SODIUM SUCCINATE
     Indication: Multiple sclerosis
     Dosage: UNK UNK, QD
     Route: 042
     Dates: start: 20220116, end: 20220118
  11. SOLUPRED [Concomitant]
     Indication: Multiple sclerosis
     Dosage: UNK UNK, TID
     Route: 065
     Dates: start: 20220119
  12. SOLUPRED [Concomitant]
     Dosage: UNK, BID
     Route: 065
  13. SOLUPRED [Concomitant]
     Dosage: UNK, QD
     Route: 065
  14. SOLUPRED [Concomitant]
     Dosage: UNK (ONE TABLET AND A HALF DAILY )
     Route: 065
  15. MADICURE [Concomitant]
     Indication: Hepatic enzyme abnormal
     Dosage: 1 DOSAGE FORM, QD
     Route: 065
     Dates: start: 2017

REACTIONS (7)
  - Multiple sclerosis relapse [Recovered/Resolved]
  - Limb discomfort [Recovered/Resolved]
  - White blood cell count increased [Unknown]
  - Hepatic enzyme increased [Recovered/Resolved]
  - Balance disorder [Recovering/Resolving]
  - Diplopia [Recovered/Resolved]
  - Limb discomfort [Recovered/Resolved]

NARRATIVE: CASE EVENT DATE: 20170101
